FAERS Safety Report 21133803 (Version 1)
Quarter: 2022Q3

REPORT INFORMATION
  Report Type: Report from Study
  Country: CA (occurrence: CA)
  Receive Date: 20220726
  Receipt Date: 20220726
  Transmission Date: 20221026
  Serious: Yes (Other)
  Sender: FDA-Public Use
  Company Number: CA-TAKEDA-2022TUS049991

PATIENT
  Age: 24 Year
  Sex: Female
  Weight: 60 kg

DRUGS (3)
  1. VEDOLIZUMAB [Suspect]
     Active Substance: VEDOLIZUMAB
     Indication: Crohn^s disease
     Dosage: 300 MILLIGRAM
     Route: 042
     Dates: start: 20210204
  2. VEDOLIZUMAB [Suspect]
     Active Substance: VEDOLIZUMAB
     Dosage: 300 MILLIGRAM, Q6WEEKS
     Route: 042
     Dates: start: 20220330
  3. ENTOCORT [Concomitant]
     Active Substance: BUDESONIDE
     Dosage: UNK
     Dates: start: 20201101

REACTIONS (5)
  - Abortion spontaneous [Unknown]
  - Ectopic pregnancy [Unknown]
  - Anaemia [Unknown]
  - Pregnancy [Recovered/Resolved]
  - Off label use [Unknown]

NARRATIVE: CASE EVENT DATE: 20220330
